FAERS Safety Report 22121591 (Version 2)
Quarter: 2023Q1

REPORT INFORMATION
  Report Type: Spontaneous
  Country: RU (occurrence: None)
  Receive Date: 20230321
  Receipt Date: 20230324
  Transmission Date: 20230417
  Serious: Yes (Other)
  Sender: FDA-Public Use
  Company Number: 2023A063202

PATIENT
  Age: 48 Year
  Sex: Female
  Weight: 97 kg

DRUGS (3)
  1. LYNPARZA [Suspect]
     Active Substance: OLAPARIB
     Indication: Ovarian cancer
     Dosage: 300 MG (2 TABLETS OF 150 MG) FOR 1DAY
     Route: 048
     Dates: start: 20220810
  2. PACLITAXEL [Concomitant]
     Active Substance: PACLITAXEL
     Indication: Ovarian cancer
     Route: 041
     Dates: start: 20220714
  3. CARBOPLATIN [Concomitant]
     Active Substance: CARBOPLATIN
     Indication: Ovarian cancer
     Route: 041
     Dates: start: 20220714

REACTIONS (2)
  - Urticaria [Recovering/Resolving]
  - Hyperthermia [Recovering/Resolving]

NARRATIVE: CASE EVENT DATE: 20220810
